FAERS Safety Report 10004110 (Version 3)
Quarter: 2014Q2

REPORT INFORMATION
  Report Type: Report from Study
  Country: CA (occurrence: CA)
  Receive Date: 20140312
  Receipt Date: 20140527
  Transmission Date: 20141212
  Serious: Yes (Other)
  Sender: FDA-Public Use
  Company Number: PHHY2014CA028965

PATIENT
  Sex: Male

DRUGS (1)
  1. GILENYA [Suspect]
     Indication: RELAPSING-REMITTING MULTIPLE SCLEROSIS
     Dosage: 0.5 MG, QD
     Route: 048
     Dates: start: 20120117, end: 20140101

REACTIONS (6)
  - Basal cell carcinoma [Not Recovered/Not Resolved]
  - Seborrhoeic keratosis [Unknown]
  - Skin lesion [Unknown]
  - Fall [Unknown]
  - Lymphadenopathy [Unknown]
  - Lymph node pain [Unknown]
